FAERS Safety Report 6204054-1 (Version None)
Quarter: 2009Q2

REPORT INFORMATION
  Report Type: 
  Country: None (occurrence: None)
  Receive Date: 20090521
  Receipt Date: 20090507
  Transmission Date: 20091009
  Serious: Yes (Hospitalization)
  Sender: FDA-Public Use
  Company Number: 8045967

PATIENT
  Age: 44 Year
  Sex: Male

DRUGS (1)
  1. CIMZIA [Suspect]
     Dosage: 400 MG

REACTIONS (2)
  - PULMONARY THROMBOSIS [None]
  - THROMBOSIS [None]
